FAERS Safety Report 6707704-6 (Version None)
Quarter: 2010Q2

REPORT INFORMATION
  Report Type: 
  Country: None (occurrence: None)
  Receive Date: 20100503
  Receipt Date: 20090805
  Transmission Date: 20101027
  Serious: No
  Sender: FDA-Public Use
  Company Number: US-ASTRAZENECA-2009SE07072

PATIENT
  Age: 46 Year
  Sex: Male
  Weight: 88.5 kg

DRUGS (3)
  1. NEXIUM [Suspect]
  2. ROGAINE [Suspect]
     Dosage: HALF A CAPFUL TWICE
     Route: 061
  3. LANSOPRAZOLE [Concomitant]
     Indication: GASTROOESOPHAGEAL REFLUX DISEASE

REACTIONS (2)
  - DANDRUFF [None]
  - PRURITUS [None]
